FAERS Safety Report 6750031-1 (Version None)
Quarter: 2010Q2

REPORT INFORMATION
  Report Type: 
  Country: None (occurrence: None)
  Receive Date: 20100527
  Receipt Date: 20100527
  Transmission Date: 20101027
  Serious: Yes (Hospitalization)
  Sender: FDA-Public Use
  Company Number: None

PATIENT
  Age: 59 Year
  Sex: Female
  Weight: 76.2043 kg

DRUGS (2)
  1. CETUXIMAB [Suspect]
     Indication: BLADDER CANCER
     Dosage: 250 MG/M2 IV WEEKLY AS PROVIDED
     Route: 042
  2. PACLITAXEL [Suspect]
     Indication: NEOPLASM MALIGNANT
     Dosage: 80 MG/M2 IV WEEKLY
     Route: 042

REACTIONS (2)
  - NEUTROPHIL COUNT DECREASED [None]
  - URINARY TRACT INFECTION [None]
